FAERS Safety Report 7340422-2 (Version None)
Quarter: 2011Q1

REPORT INFORMATION
  Report Type: 
  Country: None (occurrence: None)
  Receive Date: 20110228
  Receipt Date: 20110224
  Transmission Date: 20110831
  Serious: Yes (Other)
  Sender: FDA-Public Use
  Company Number: 1000017072

PATIENT
  Age: 51 Year
  Sex: Male

DRUGS (3)
  1. FLEXERIL (CYCLOBENZAPRINE) (CYCLOBENZAPRINE) [Concomitant]
  2. BYSTOLIC [Suspect]
     Dosage: 5 MG (5 MG, 1 IN 1 D),ORAL
     Route: 048
     Dates: start: 20100401
  3. FIORINAL (BUTALBITAL, ASPIRIN, CAFFEINE) (BUTALBITAL, ASPIRIN, CAFFEIN [Concomitant]

REACTIONS (2)
  - THROMBOCYTOPENIA [None]
  - LEUKAEMIA [None]
